FAERS Safety Report 6233120-X (Version None)
Quarter: 2009Q2

REPORT INFORMATION
  Report Type: 
  Country: None (occurrence: None)
  Receive Date: 20090617
  Receipt Date: 20081219
  Transmission Date: 20091009
  Serious: Yes (Other)
  Sender: FDA-Public Use
  Company Number: NO-PFIZER INC-2008158394

PATIENT

DRUGS (10)
  1. CELEBRA [Suspect]
     Indication: RHEUMATOID ARTHRITIS
     Route: 048
     Dates: start: 20000101, end: 20050101
  2. HUMIRA [Concomitant]
     Route: 058
     Dates: start: 20030430
  3. PREDNISOLONE STEALGATE [Concomitant]
     Route: 048
  4. LEDERSPAN [Concomitant]
     Route: 014
     Dates: start: 19950501
  5. KENACORT-T [Concomitant]
     Route: 030
  6. METHOTREXATE SODIUM [Concomitant]
     Route: 048
     Dates: start: 19960101
  7. FOLIC ACID [Concomitant]
     Dates: start: 19960101
  8. CALCIGRAN [Concomitant]
  9. LOVAZA [Concomitant]
  10. REMICADE [Concomitant]

REACTIONS (2)
  - ARRHYTHMIA [None]
  - ATRIAL FIBRILLATION [None]
